FAERS Safety Report 7640936-1 (Version None)
Quarter: 2011Q3

REPORT INFORMATION
  Report Type: 
  Country: None (occurrence: None)
  Receive Date: 20110721
  Receipt Date: 20110714
  Transmission Date: 20111222
  Serious: Yes (Life-Threatening, Hospitalization)
  Sender: FDA-Public Use
  Company Number: WAES 1107USA01535

PATIENT
  Age: 67 Year
  Sex: Male

DRUGS (10)
  1. ASTRAPHANE MC [Concomitant]
  2. METFORMIN [Concomitant]
  3. PLACEBO [Suspect]
     Indication: ACUTE CORONARY SYNDROME
     Dosage: [P
     Route: 053
     Dates: start: 20090401
  4. PLETAL [Concomitant]
  5. RAMIPRIL [Concomitant]
  6. FALITHROM [Concomitant]
  7. VYTORIN [Suspect]
     Indication: ACUTE CORONARY SYNDROME
     Dosage: 10-40 MG, DAILY, PO
     Route: 048
     Dates: start: 20090401
  8. METOPROLOL SUCCINATE [Concomitant]
  9. TORSEMIDE [Concomitant]
  10. PLACEBO [Suspect]
     Indication: ACUTE CORONARY SYNDROME
     Dosage: PO
     Route: 048
     Dates: start: 20090401

REACTIONS (2)
  - DIABETIC FOOT [None]
  - GASTROINTESTINAL CARCINOMA [None]
